FAERS Safety Report 9404288 (Version 1)
Quarter: 2013Q3

REPORT INFORMATION
  Report Type: Spontaneous
  Country: US (occurrence: None)
  Receive Date: 20130715
  Receipt Date: 20130715
  Transmission Date: 20140515
  Serious: Yes (Death)
  Sender: FDA-Public Use
  Company Number: 1713747-2013-99921

PATIENT
  Age: 58 Year
  Sex: Male
  Weight: 106 kg

DRUGS (6)
  1. SALINE [Suspect]
  2. FRESENIUS HEMODIALYSIS MACHINE [Concomitant]
  3. DAILYZER [Concomitant]
  4. BLOODLINES [Concomitant]
  5. GRANUFLO [Concomitant]
  6. NATURALYTE [Concomitant]

REACTIONS (1)
  - Cardiovascular disorder [None]
